FAERS Safety Report 7781478-2 (Version None)
Quarter: 2011Q3

REPORT INFORMATION
  Report Type: 
  Country: None (occurrence: None)
  Receive Date: 20110927
  Receipt Date: 20110923
  Transmission Date: 20111222
  Serious: Yes (Death, Hospitalization)
  Sender: FDA-Public Use
  Company Number: PHHY2011GB81608

PATIENT
  Age: 27 Year
  Sex: Female

DRUGS (4)
  1. IBUPROFEN [Suspect]
     Dosage: 7000 MG, UNK
  2. FERROUS SULFATE TAB [Suspect]
     Dosage: 86 TABLETS (EQUIVALENT TO 103 MEQ/KG OF ELEMENTAL IRON)
     Route: 048
  3. CO-DYDRAMOL [Suspect]
     Dosage: 16 TABLETS (8 G OF PARACETAMOL, 148/KG)
     Route: 048
  4. DICLOFENAC [Suspect]
     Dosage: 2800 MG, UNK

REACTIONS (25)
  - HEPATOTOXICITY [None]
  - ANALGESIC DRUG LEVEL INCREASED [None]
  - HAEMATEMESIS [None]
  - ALANINE AMINOTRANSFERASE INCREASED [None]
  - PH BODY FLUID DECREASED [None]
  - SINUS TACHYCARDIA [None]
  - COAGULOPATHY [None]
  - BLOOD PRESSURE DIASTOLIC DECREASED [None]
  - BLOOD IRON INCREASED [None]
  - INTERNATIONAL NORMALISED RATIO INCREASED [None]
  - BLOOD CALCIUM DECREASED [None]
  - ANAEMIA [None]
  - ELECTROLYTE IMBALANCE [None]
  - BLOOD BICARBONATE DECREASED [None]
  - NAUSEA [None]
  - BLOOD BILIRUBIN INCREASED [None]
  - WHITE BLOOD CELL COUNT INCREASED [None]
  - VOMITING [None]
  - MULTI-ORGAN FAILURE [None]
  - GENERAL PHYSICAL HEALTH DETERIORATION [None]
  - BLOOD PHOSPHORUS DECREASED [None]
  - OVERDOSE [None]
  - METABOLIC ACIDOSIS [None]
  - BLOOD LACTIC ACID INCREASED [None]
  - HYPOTENSION [None]
